FAERS Safety Report 6835470-2 (Version None)
Quarter: 2010Q3

REPORT INFORMATION
  Report Type: 
  Country: None (occurrence: None)
  Receive Date: 20100713
  Receipt Date: 20100629
  Transmission Date: 20110219
  Serious: Yes (Other)
  Sender: FDA-Public Use
  Company Number: PHHY2010US26168

PATIENT
  Age: 42 Year
  Sex: Male
  Weight: 80.7 kg

DRUGS (7)
  1. GLEEVEC [Suspect]
     Indication: CHRONIC MYELOID LEUKAEMIA
     Dosage: 400 MG DAILY
     Route: 048
     Dates: start: 20090501, end: 20100329
  2. GLEEVEC [Suspect]
     Dosage: UNK
     Route: 048
  3. ALLOPURINOL [Concomitant]
  4. IRON [Concomitant]
  5. MULTI-VITAMIN [Concomitant]
  6. OMEPRAZOLE [Concomitant]
  7. IMURAN [Concomitant]

REACTIONS (2)
  - AUTOIMMUNE HEPATITIS [None]
  - HEPATIC ENZYME INCREASED [None]
